FAERS Safety Report 15853659 (Version 1)
Quarter: 2018Q4

REPORT INFORMATION
  Report Type: Spontaneous
  Country: US (occurrence: US)
  Receive Date: 20181228
  Receipt Date: 20181228
  Transmission Date: 20190205
  Serious: No
  Sender: FDA-Public Use
  Company Number: None

PATIENT
  Age: 49 Year
  Sex: Female

DRUGS (3)
  1. MELOXICAM. [Concomitant]
     Active Substance: MELOXICAM
  2. PROBIOTIC [Concomitant]
     Active Substance: PROBIOTICS NOS
  3. SIMPONI [Suspect]
     Active Substance: GOLIMUMAB
     Indication: PSORIATIC ARTHROPATHY
     Dates: start: 201809, end: 20181203

REACTIONS (2)
  - Drug effect incomplete [None]
  - Pneumonia [None]

NARRATIVE: CASE EVENT DATE: 20181203
